FAERS Safety Report 5832857-1 (Version None)
Quarter: 2008Q3

REPORT INFORMATION
  Report Type: 
  Country: None (occurrence: None)
  Receive Date: 20080804
  Receipt Date: 20080723
  Transmission Date: 20090109
  Serious: Yes (Other)
  Sender: FDA-Public Use
  Company Number: FR-PFIZER INC-2008062843

PATIENT
  Age: 55 Year
  Sex: Male

DRUGS (2)
  1. CHANTIX [Suspect]
     Indication: SMOKING CESSATION THERAPY
  2. DRUG, UNSPECIFIED [Concomitant]

REACTIONS (2)
  - CONFUSIONAL STATE [None]
  - DIARRHOEA [None]
